FAERS Safety Report 7385843-7 (Version None)
Quarter: 2011Q1

REPORT INFORMATION
  Report Type: 
  Country: None (occurrence: None)
  Receive Date: 20110331
  Receipt Date: 20110325
  Transmission Date: 20110831
  Serious: No
  Sender: FDA-Public Use
  Company Number: US-PFIZER INC-2009218204

PATIENT
  Sex: Female

DRUGS (2)
  1. XALATAN [Suspect]
     Indication: GLAUCOMA
     Dosage: UNK
     Dates: start: 20070604
  2. ERYTHROMYCIN [Concomitant]
     Dosage: UNK

REACTIONS (2)
  - EYE PAIN [None]
  - EYE IRRITATION [None]
